FAERS Safety Report 14386293 (Version 1)
Quarter: 2018Q1

REPORT INFORMATION
  Report Type: Spontaneous
  Country: US (occurrence: US)
  Receive Date: 20180115
  Receipt Date: 20180115
  Transmission Date: 20180509
  Serious: Yes (Other)
  Sender: FDA-Public Use
  Company Number: US-SA-2017SA092746

PATIENT
  Age: 48 Year
  Sex: Female

DRUGS (7)
  1. TAXOTERE [Suspect]
     Active Substance: DOCETAXEL
     Indication: BREAST CANCER
     Dosage: 80MG VITAL 150MG
     Route: 051
     Dates: start: 20141203, end: 20141203
  2. ATIVAN [Concomitant]
     Active Substance: LORAZEPAM
  3. PARAPLATIN [Concomitant]
     Active Substance: CARBOPLATIN
  4. LOPRESSOR [Concomitant]
     Active Substance: METOPROLOL TARTRATE
  5. HYDROCHLOROTHIAZIDE. [Concomitant]
     Active Substance: HYDROCHLOROTHIAZIDE
  6. TAXOTERE [Suspect]
     Active Substance: DOCETAXEL
     Indication: BREAST CANCER
     Dosage: 80MG VITAL 150MG
     Route: 051
     Dates: start: 20150114, end: 20150114
  7. NEXIUM [Concomitant]
     Active Substance: ESOMEPRAZOLE MAGNESIUM

REACTIONS (1)
  - Alopecia [Not Recovered/Not Resolved]
